FAERS Safety Report 6578157-6 (Version None)
Quarter: 2010Q1

REPORT INFORMATION
  Report Type: 
  Country: None (occurrence: None)
  Receive Date: 20100211
  Receipt Date: 20100204
  Transmission Date: 20100710
  Serious: Yes (Other)
  Sender: FDA-Public Use
  Company Number: US-PFIZER INC-2009295543

PATIENT
  Sex: Female
  Weight: 73.923 kg

DRUGS (3)
  1. CHANTIX [Suspect]
     Indication: SMOKING CESSATION THERAPY
     Dosage: 0.5 MG, 1X/DAY
     Route: 048
     Dates: start: 20091031, end: 20091101
  2. CLONIDINE [Concomitant]
     Indication: HYPERTENSION
     Dosage: UNK MG, 2X/DAY
     Route: 048
  3. TYLENOL-500 [Concomitant]
     Indication: INSOMNIA
     Dosage: UNK

REACTIONS (3)
  - DEPRESSION [None]
  - HOMICIDAL IDEATION [None]
  - MOOD SWINGS [None]
